FAERS Safety Report 18658292 (Version 1)
Quarter: 2020Q4

REPORT INFORMATION
  Report Type: Spontaneous
  Country: PL (occurrence: PL)
  Receive Date: 20201224
  Receipt Date: 20201224
  Transmission Date: 20210114
  Serious: Yes (Other)
  Sender: FDA-Public Use
  Company Number: PL-009507513-2012POL008312

PATIENT
  Age: 55 Year
  Sex: Male

DRUGS (5)
  1. CYTARABINE. [Interacting]
     Active Substance: CYTARABINE
     Indication: ACUTE MYELOID LEUKAEMIA
     Dosage: UNK (DAC REGIMEN)
     Route: 065
  2. RYDAPT [Interacting]
     Active Substance: MIDOSTAURIN
     Indication: ACUTE MYELOID LEUKAEMIA
     Dosage: UNK
     Route: 065
  3. MICAFUNGIN. [Concomitant]
     Active Substance: MICAFUNGIN SODIUM
     Indication: PRODUCT USED FOR UNKNOWN INDICATION
     Route: 065
  4. POSACONAZOLE [Suspect]
     Active Substance: POSACONAZOLE
     Indication: PRODUCT USED FOR UNKNOWN INDICATION
     Dosage: UNK
     Route: 065
  5. DAUNORUBICIN [Interacting]
     Active Substance: DAUNORUBICIN
     Indication: ACUTE MYELOID LEUKAEMIA
     Dosage: UNK (DAC REGIMEN)
     Route: 065

REACTIONS (7)
  - Diarrhoea [Unknown]
  - Drug interaction [Unknown]
  - Pharyngeal abscess [Unknown]
  - Infection [Unknown]
  - Hepatotoxicity [Unknown]
  - Sepsis [Unknown]
  - Impaired healing [Unknown]
